FAERS Safety Report 9442471 (Version 1)
Quarter: 2013Q3

REPORT INFORMATION
  Report Type: Spontaneous
  Country: US (occurrence: None)
  Receive Date: 20130805
  Receipt Date: 20130805
  Transmission Date: 20140515
  Serious: Yes (Hospitalization)
  Sender: FDA-Public Use
  Company Number: None

PATIENT
  Age: 44 Year
  Sex: Female
  Weight: 90.72 kg

DRUGS (1)
  1. RELPAX [Suspect]
     Indication: MIGRAINE
     Dosage: 40MG #1 PILL @ ONSET HA REPEAT 2 HRS BY MOUTH
     Route: 048
     Dates: start: 20070101, end: 20130729

REACTIONS (2)
  - VIIth nerve paralysis [None]
  - Inappropriate schedule of drug administration [None]
